FAERS Safety Report 12924630 (Version 5)
Quarter: 2016Q4

REPORT INFORMATION
  Report Type: Report from Study
  Country: KR (occurrence: KR)
  Receive Date: 20161108
  Receipt Date: 20161216
  Transmission Date: 20170207
  Serious: Yes (Hospitalization, Other)
  Sender: FDA-Public Use
  Company Number: KR-TAKEDA-2016MPI009548

PATIENT
  Age: 75 Year
  Sex: Female
  Weight: 53 kg

DRUGS (13)
  1. IXAZOMIB [Suspect]
     Active Substance: IXAZOMIB
     Indication: PLASMA CELL MYELOMA
     Dosage: 4 MG, UNK
     Route: 048
     Dates: start: 20160411, end: 20161031
  2. CRESTOR [Concomitant]
     Active Substance: ROSUVASTATIN CALCIUM
     Dosage: 5 MG, QD
     Dates: start: 20160303
  3. MUPIROCIN. [Concomitant]
     Active Substance: MUPIROCIN
     Dosage: UNK, QD
     Dates: start: 20160929
  4. FLUMETHORONE [Concomitant]
     Dosage: 5 ML, UNK
     Dates: start: 20160509
  5. ZOVIRAX [Concomitant]
     Active Substance: ACYCLOVIR
     Dosage: 400 MG, BID
     Route: 048
     Dates: start: 20160926
  6. GABAPENTIN. [Concomitant]
     Active Substance: GABAPENTIN
     Dosage: 300 MG, TID
     Route: 048
     Dates: start: 20151231
  7. GASTER [Concomitant]
     Active Substance: FAMOTIDINE
     Dosage: 20 MG, BID
     Dates: start: 20160908
  8. LOPERAMIDE [Concomitant]
     Active Substance: LOPERAMIDE
     Dosage: 2 MG, QD
     Dates: start: 20161024
  9. SEPTRIN [Concomitant]
     Active Substance: SULFAMETHOXAZOLE\TRIMETHOPRIM
     Dosage: 480 MG, QD
     Route: 048
     Dates: start: 20151119
  10. ULCERMIN                           /00434701/ [Concomitant]
     Dosage: UNK, TID
     Dates: start: 20160908
  11. BETMIGA PR [Concomitant]
     Dosage: 50 MG, QD
     Route: 048
     Dates: start: 20161027
  12. ASPIRIN. [Concomitant]
     Active Substance: ASPIRIN
     Dosage: 100 MG, QD
     Dates: start: 20160121
  13. CYMBALTA [Concomitant]
     Active Substance: DULOXETINE HYDROCHLORIDE
     Dosage: 30 MG, QD
     Route: 048
     Dates: start: 20160317

REACTIONS (2)
  - Acute kidney injury [Recovering/Resolving]
  - Pneumonia [Recovering/Resolving]

NARRATIVE: CASE EVENT DATE: 20161031
